FAERS Safety Report 21390697 (Version 1)
Quarter: 2022Q3

REPORT INFORMATION
  Report Type: Other
  Country: CN (occurrence: CN)
  Receive Date: 20220929
  Receipt Date: 20220929
  Transmission Date: 20221027
  Serious: Yes (Other)
  Sender: FDA-Public Use
  Company Number: CN-GE HEALTHCARE-2022CSU006889

PATIENT
  Age: 62 Year
  Sex: Female
  Weight: 50 kg

DRUGS (3)
  1. OMNIPAQUE [Suspect]
     Active Substance: IOHEXOL
     Indication: Computerised tomogram abdomen
     Dosage: 35 GM, SINGLE
     Route: 040
     Dates: start: 20220823, end: 20220823
  2. OMNIPAQUE [Suspect]
     Active Substance: IOHEXOL
     Indication: Hepatic cyst
  3. OMNIPAQUE [Suspect]
     Active Substance: IOHEXOL
     Indication: Gallbladder polyp

REACTIONS (7)
  - Oropharyngeal pain [Recovering/Resolving]
  - Nasal obstruction [Recovering/Resolving]
  - Sneezing [Recovering/Resolving]
  - Blood pressure increased [Recovering/Resolving]
  - Chest discomfort [Recovering/Resolving]
  - Dizziness [Recovering/Resolving]
  - Flushing [Recovering/Resolving]

NARRATIVE: CASE EVENT DATE: 20220823
